FAERS Safety Report 8048834-9 (Version None)
Quarter: 2011Q4

REPORT INFORMATION
  Report Type: 
  Country: None (occurrence: None)
  Receive Date: 20111209
  Receipt Date: 20110728
  Transmission Date: 20120403
  Serious: No
  Sender: FDA-Public Use
  Company Number: 2011SP035545

PATIENT
  Sex: Male

DRUGS (6)
  1. PEGASYS [Suspect]
     Indication: PRODUCT USED FOR UNKNOWN INDICATION
     Dosage: 180 MCG; QW
     Dates: start: 20110701
  2. VICTRELIS [Suspect]
     Indication: HEPATITIS C
     Dosage: 800 MG; Q8H; PO
     Route: 048
     Dates: start: 20110701
  3. RIBAVIRIN [Suspect]
     Indication: PRODUCT USED FOR UNKNOWN INDICATION
     Dosage: 1400 MG; QD;
  4. MICARDIS [Concomitant]
  5. LRXAPRO [Concomitant]
  6. NEXIUM [Concomitant]

REACTIONS (1)
  - MOUTH ULCERATION [None]
